FAERS Safety Report 9729927 (Version 1)
Quarter: 2013Q4

REPORT INFORMATION
  Report Type: Spontaneous
  Country: DE (occurrence: DE)
  Receive Date: 20131204
  Receipt Date: 20131204
  Transmission Date: 20140711
  Serious: Yes (Other)
  Sender: FDA-Public Use
  Company Number: DE-UCBSA-104382

PATIENT
  Age: 70 Year
  Sex: Male

DRUGS (2)
  1. KEPPRA [Suspect]
     Dosage: DAILY DOSE: 250 MG
  2. KEPPRA [Suspect]
     Dosage: 500 MG

REACTIONS (4)
  - Coma [Unknown]
  - Confusional state [Unknown]
  - Arthralgia [Unknown]
  - Lethargy [Unknown]
